FAERS Safety Report 8969068 (Version 1)
Quarter: 2012Q4

REPORT INFORMATION
  Report Type: 
  Country: US (occurrence: US)
  Receive Date: 20121218
  Receipt Date: 20121218
  Transmission Date: 20130627
  Serious: Yes (Other)
  Sender: FDA-Public Use
  Company Number: US-BRISTOL-MYERS SQUIBB COMPANY-16706905

PATIENT
  Age: 43 Year
  Sex: Male

DRUGS (2)
  1. ABILIFY [Suspect]
  2. NARDIL [Suspect]
     Indication: DEPRESSION
     Dosage: 15mg TABS
     Dates: start: 1985

REACTIONS (2)
  - Parkinsonism [Unknown]
  - Feeling abnormal [Unknown]
